FAERS Safety Report 5902849-2 (Version None)
Quarter: 2008Q3

REPORT INFORMATION
  Report Type: 
  Country: None (occurrence: None)
  Receive Date: 20080929
  Receipt Date: 20080929
  Transmission Date: 20090109
  Serious: Yes (Hospitalization)
  Sender: FDA-Public Use
  Company Number: None

PATIENT
  Age: 73 Year
  Sex: Male
  Weight: 108.9 kg

DRUGS (2)
  1. IBUPROFEN TABLETS [Suspect]
     Dosage: 600 MG PRN PO
     Route: 048
     Dates: end: 20080928
  2. ASPIRIN [Suspect]
     Dosage: 81 MG EVERY DAY PO
     Route: 048
     Dates: end: 20080928

REACTIONS (4)
  - ASTHENIA [None]
  - DYSSTASIA [None]
  - GAIT DISTURBANCE [None]
  - GASTRIC HAEMORRHAGE [None]
